FAERS Safety Report 4743705-5 (Version None)
Quarter: 2005Q3

REPORT INFORMATION
  Report Type: 
  Country: None (occurrence: None)
  Receive Date: 20050812
  Receipt Date: 20050520
  Transmission Date: 20060218
  Serious: Yes (Other)
  Sender: FDA-Public Use
  Company Number: 2005AP03042

PATIENT
  Age: 14440 Day
  Sex: Female
  Weight: 77.4 kg

DRUGS (7)
  1. ANAPEINE [Suspect]
     Indication: EPIDURAL ANAESTHESIA
     Dosage: TOTAL DOSE = 44 ML
     Route: 008
     Dates: start: 20050428, end: 20050430
  2. CARBOCAIN [Concomitant]
     Dates: start: 20050428
  3. MARCAINE [Concomitant]
     Dates: start: 20050428
  4. DROLEPTAN [Concomitant]
     Indication: ANAESTHESIA
     Dates: start: 20050428, end: 20050430
  5. ISOTONIC SODIUM CHLORIDE SOLUTION [Concomitant]
     Dates: start: 20050428, end: 20050430
  6. SOLITA-T NO.3 [Concomitant]
     Indication: SUBSTITUTION THERAPY
     Dates: start: 20050428
  7. PENTCILLIN [Concomitant]
     Dates: start: 20050428

REACTIONS (3)
  - DYSLALIA [None]
  - HYPOGLOSSAL NERVE DISORDER [None]
  - TONGUE PARALYSIS [None]
